FAERS Safety Report 13830833 (Version 1)
Quarter: 2017Q3

REPORT INFORMATION
  Report Type: Spontaneous
  Country: US (occurrence: US)
  Receive Date: 20170803
  Receipt Date: 20170803
  Transmission Date: 20171127
  Serious: Yes (Other)
  Sender: FDA-Public Use
  Company Number: US-ASTRAZENECA-2017SE78886

PATIENT
  Sex: Male
  Weight: 77.1 kg

DRUGS (4)
  1. SEROQUEL XR [Suspect]
     Active Substance: QUETIAPINE FUMARATE
     Indication: AUTISM SPECTRUM DISORDER
     Route: 048
     Dates: start: 2014
  2. SEROQUEL XR [Suspect]
     Active Substance: QUETIAPINE FUMARATE
     Indication: BIPOLAR DISORDER
     Route: 048
     Dates: start: 2014
  3. SEROQUEL XR [Suspect]
     Active Substance: QUETIAPINE FUMARATE
     Indication: BIPOLAR DISORDER
     Route: 048
     Dates: end: 201605
  4. SEROQUEL XR [Suspect]
     Active Substance: QUETIAPINE FUMARATE
     Indication: AUTISM SPECTRUM DISORDER
     Route: 048
     Dates: end: 201605

REACTIONS (20)
  - Amnesia [Recovering/Resolving]
  - Adverse event [Unknown]
  - Intentional product misuse [Recovered/Resolved]
  - Stress [Unknown]
  - Tremor [Unknown]
  - Off label use [Unknown]
  - Confusional state [Unknown]
  - Incoherent [Unknown]
  - Feeling abnormal [Unknown]
  - Product use in unapproved indication [Unknown]
  - Renal failure [Unknown]
  - Intentional self-injury [Unknown]
  - Personality disorder [Unknown]
  - Fatigue [Unknown]
  - Emotional distress [Unknown]
  - Loss of consciousness [Unknown]
  - Sexually inappropriate behaviour [Unknown]
  - Attention deficit/hyperactivity disorder [Unknown]
  - Skin disorder [Unknown]
  - Somnolence [Unknown]
